FAERS Safety Report 7564310-1 (Version None)
Quarter: 2011Q2

REPORT INFORMATION
  Report Type: 
  Country: None (occurrence: None)
  Receive Date: 20110622
  Receipt Date: 20110506
  Transmission Date: 20111010
  Serious: No
  Sender: FDA-Public Use
  Company Number: US-ALLERGAN-1106264US

PATIENT
  Age: 76 Year
  Sex: Male

DRUGS (1)
  1. LUMIGAN [Suspect]
     Indication: GLAUCOMA
     Dosage: 1 DROP INSTILLED ONCE EACH NIGHT BEFORE BED TO EACH EYE
     Route: 047

REACTIONS (1)
  - EYE PRURITUS [None]
